FAERS Safety Report 7610023-7 (Version None)
Quarter: 2011Q3

REPORT INFORMATION
  Report Type: 
  Country: None (occurrence: None)
  Receive Date: 20110714
  Receipt Date: 20110613
  Transmission Date: 20111222
  Serious: No
  Sender: FDA-Public Use
  Company Number: US-BAYER-2011-051466

PATIENT
  Age: 58 Year
  Sex: Male
  Weight: 86.168 kg

DRUGS (2)
  1. ANTIBIOTICS [Concomitant]
     Indication: DERMAL CYST
     Dosage: UNK
  2. ALEVE (CAPLET) [Suspect]
     Indication: PRODUCT USED FOR UNKNOWN INDICATION
     Dosage: 1 DF, ONCE, BOTTLE COUNT 100S
     Route: 048
     Dates: start: 20110612, end: 20110612

REACTIONS (5)
  - DYSPEPSIA [None]
  - SCROTAL SWELLING [None]
  - MIDDLE INSOMNIA [None]
  - LIP SWELLING [None]
  - HYPOAESTHESIA ORAL [None]
